FAERS Safety Report 5218830-5 (Version None)
Quarter: 2007Q1

REPORT INFORMATION
  Report Type: 
  Country: None (occurrence: None)
  Receive Date: 20070125
  Receipt Date: 20070117
  Transmission Date: 20070707
  Serious: Yes (Hospitalization, Other)
  Sender: FDA-Public Use
  Company Number: PHEH2005US10713

PATIENT
  Age: 54 Year
  Sex: Male

DRUGS (18)
  1. IMMUNOGLOBULINS [Concomitant]
  2. PROCRIT [Concomitant]
  3. AREDIA [Suspect]
     Indication: MULTIPLE MYELOMA
     Dosage: 90 MG, QMO
     Dates: start: 19960101, end: 20011214
  4. ZOMETA [Suspect]
     Indication: MULTIPLE MYELOMA
     Dosage: 4 MG, QMO
     Dates: start: 20020208, end: 20050421
  5. MELPHALAN [Concomitant]
     Indication: MULTIPLE MYELOMA
  6. PREDNISONE TAB [Concomitant]
     Indication: MULTIPLE MYELOMA
  7. THALIDOMIDE [Concomitant]
     Indication: MULTIPLE MYELOMA
     Dates: start: 20040201
  8. THALIDOMIDE [Concomitant]
     Dosage: 200 MG, QD
     Dates: start: 20040601
  9. DECADRON [Concomitant]
     Indication: MULTIPLE MYELOMA
     Dates: start: 20040201
  10. DECADRON [Concomitant]
     Dosage: 100 MG, QD
     Dates: start: 20040601
  11. DECADRON [Concomitant]
     Dosage: PULSE Q2WKS
     Dates: start: 20041001
  12. WARFARIN SODIUM [Concomitant]
     Indication: DEEP VEIN THROMBOSIS
  13. MEGACE [Concomitant]
     Indication: ANOREXIA
  14. GERITOL /USA/ [Concomitant]
     Dates: end: 20040701
  15. NEXIUM [Concomitant]
     Dosage: 40 MG, UNK
     Dates: end: 20040701
  16. SENNA [Concomitant]
  17. PROTONIX [Concomitant]
  18. METOCLOPRAMIDE [Concomitant]

REACTIONS (49)
  - ABSCESS [None]
  - ACTINOMYCOSIS [None]
  - ALVEOLOPLASTY [None]
  - ANAEMIA [None]
  - ANOREXIA [None]
  - ASTHENIA [None]
  - BACK PAIN [None]
  - BONE DISORDER [None]
  - BRONCHITIS [None]
  - CONSTIPATION [None]
  - DECUBITUS ULCER [None]
  - DEEP VEIN THROMBOSIS [None]
  - DENTAL OPERATION [None]
  - EARLY SATIETY [None]
  - HAEMOGLOBIN DECREASED [None]
  - IMMUNODEFICIENCY [None]
  - INCISIONAL DRAINAGE [None]
  - INFLAMMATION [None]
  - JAW OPERATION [None]
  - MALIGNANT NEOPLASM PROGRESSION [None]
  - METASTASES TO BONE [None]
  - METASTASES TO SPINE [None]
  - MUSCULOSKELETAL CHEST PAIN [None]
  - OPEN REDUCTION OF FRACTURE [None]
  - ORAL INFECTION [None]
  - OSTEOMYELITIS [None]
  - OSTEONECROSIS [None]
  - PAIN IN JAW [None]
  - PAROTID GLAND ENLARGEMENT [None]
  - PAROTITIS [None]
  - PATHOLOGICAL FRACTURE [None]
  - PERSONALITY CHANGE [None]
  - PRODUCTIVE COUGH [None]
  - PURULENCE [None]
  - PYREXIA [None]
  - RADIOTHERAPY [None]
  - SINUSITIS [None]
  - SOFT TISSUE INFLAMMATION [None]
  - SPINAL COMPRESSION FRACTURE [None]
  - SPINAL DISORDER [None]
  - STAPHYLOCOCCAL INFECTION [None]
  - SWELLING [None]
  - TOOTH DEPOSIT [None]
  - TOOTH EXTRACTION [None]
  - TRISMUS [None]
  - UPPER RESPIRATORY TRACT INFECTION [None]
  - VERTEBROPLASTY [None]
  - WEIGHT DECREASED [None]
  - WOUND DEBRIDEMENT [None]
